FAERS Safety Report 13722048 (Version 5)
Quarter: 2017Q4

REPORT INFORMATION
  Report Type: Spontaneous
  Country: US (occurrence: US)
  Receive Date: 20170706
  Receipt Date: 20171109
  Transmission Date: 20180320
  Serious: No
  Sender: FDA-Public Use
  Company Number: US-PFIZER INC-2017284246

PATIENT
  Age: 62 Year
  Sex: Male
  Weight: 63 kg

DRUGS (3)
  1. SUTENT [Suspect]
     Active Substance: SUNITINIB MALATE
     Dosage: 50 MG, CYCLIC, (D1-28 Q42 DAYS )
     Route: 048
     Dates: start: 20170621
  2. SUTENT [Suspect]
     Active Substance: SUNITINIB MALATE
     Dosage: 50 MG, CYCLIC, (DAILY X 4 WEEKS, ON, 2 WEEKS OFF)
     Route: 048
     Dates: start: 201706, end: 201711
  3. SUTENT [Suspect]
     Active Substance: SUNITINIB MALATE
     Indication: RENAL CANCER
     Dosage: 50 MG, CYCLIC, (D1-28 Q42 DAYS )
     Route: 048
     Dates: start: 20170621

REACTIONS (2)
  - Somnolence [Unknown]
  - Neoplasm progression [Unknown]

NARRATIVE: CASE EVENT DATE: 2017
